FAERS Safety Report 4765941-4 (Version None)
Quarter: 2005Q3

REPORT INFORMATION
  Report Type: 
  Country: None (occurrence: None)
  Receive Date: 20050908
  Receipt Date: 20050908
  Transmission Date: 20060218
  Serious: Yes (Hospitalization)
  Sender: FDA-Public Use
  Company Number: None

PATIENT
  Age: 21 Year
  Sex: Female
  Weight: 75.8 kg

DRUGS (5)
  1. ASPIRIN [Suspect]
     Indication: THROMBOCYTHAEMIA
     Dosage: 81 MG PO DAILY
     Route: 048
  2. IRON [Concomitant]
  3. FLAGYL [Concomitant]
  4. DOXYCYCLINE [Concomitant]
  5. PEPCID [Concomitant]

REACTIONS (10)
  - ASTHENIA [None]
  - CHEST PAIN [None]
  - GASTRITIS EROSIVE [None]
  - HAEMATOCHEZIA [None]
  - HAEMATOCRIT DECREASED [None]
  - HAEMATURIA [None]
  - HAEMOGLOBIN DECREASED [None]
  - NAUSEA [None]
  - SYNCOPE [None]
  - TREATMENT NONCOMPLIANCE [None]
